FAERS Safety Report 23785917 (Version 1)
Quarter: 2024Q2

REPORT INFORMATION
  Report Type: Spontaneous
  Country: CH (occurrence: CH)
  Receive Date: 20240426
  Receipt Date: 20240426
  Transmission Date: 20240716
  Serious: Yes (Death, Life-Threatening, Hospitalization, Other)
  Sender: FDA-Public Use
  Company Number: CH-STRIDES ARCOLAB LIMITED-2024SP004754

PATIENT
  Age: 49 Year
  Sex: Male

DRUGS (34)
  1. OLANZAPINE [Suspect]
     Active Substance: OLANZAPINE
     Indication: Schizophrenia
     Dosage: 10 MILLIGRA, AT BEDTIME
     Route: 065
  2. OLANZAPINE [Suspect]
     Active Substance: OLANZAPINE
     Indication: Malignant catatonia
     Dosage: 5 MILLIGRAM, AT NIGHT; THERAPY INITIATED AGAIN
     Route: 065
  3. OLANZAPINE [Suspect]
     Active Substance: OLANZAPINE
     Dosage: 20 MILLIGRAM, TITRATED; NIGHTLY
     Route: 065
  4. AMANTADINE HYDROCHLORIDE [Suspect]
     Active Substance: AMANTADINE HYDROCHLORIDE
     Indication: Schizophrenia
     Dosage: 600 MILLIGRAM
     Route: 065
  5. AMANTADINE HYDROCHLORIDE [Suspect]
     Active Substance: AMANTADINE HYDROCHLORIDE
     Indication: Malignant catatonia
  6. LEVETIRACETAM [Suspect]
     Active Substance: LEVETIRACETAM
     Indication: Schizophrenia
     Dosage: UNK
     Route: 065
  7. LEVETIRACETAM [Suspect]
     Active Substance: LEVETIRACETAM
     Indication: Malignant catatonia
  8. LORAZEPAM [Suspect]
     Active Substance: LORAZEPAM
     Indication: Schizophrenia
     Dosage: 1 MILLIGRAM, EVERY 8 HRS
     Route: 065
  9. LORAZEPAM [Suspect]
     Active Substance: LORAZEPAM
     Indication: Malignant catatonia
     Dosage: 1.5 NILLIGRAM 4?TIMES A DAY, DOSE INCREASED
     Route: 065
  10. LORAZEPAM [Suspect]
     Active Substance: LORAZEPAM
     Dosage: 2 MILLIGRAM
     Route: 030
  11. LORAZEPAM [Suspect]
     Active Substance: LORAZEPAM
     Dosage: 20 MILLIGRAM, QD
     Route: 030
  12. LORAZEPAM [Suspect]
     Active Substance: LORAZEPAM
     Dosage: 10 MILLIGRAM, QD
     Route: 030
  13. LORAZEPAM [Suspect]
     Active Substance: LORAZEPAM
     Dosage: UNK, AGAIN INITIATED ON HIGH-DOSE
     Route: 065
  14. LORAZEPAM [Suspect]
     Active Substance: LORAZEPAM
     Dosage: 36 MILLIGRAM, QD
     Route: 065
  15. LORAZEPAM [Suspect]
     Active Substance: LORAZEPAM
     Dosage: 2 MILLIGRAM, EVERY 8 HRS
     Route: 065
  16. CLOZAPINE [Suspect]
     Active Substance: CLOZAPINE
     Indication: Schizophrenia
     Dosage: UNK
     Route: 065
  17. CLOZAPINE [Suspect]
     Active Substance: CLOZAPINE
     Indication: Malignant catatonia
  18. DIAZEPAM [Suspect]
     Active Substance: DIAZEPAM
     Indication: Schizophrenia
     Dosage: UNK, INITIAL DOSE NOT STATED
     Route: 042
  19. DIAZEPAM [Suspect]
     Active Substance: DIAZEPAM
     Indication: Malignant catatonia
     Dosage: 12.5 MILLIGRAM 4?TIMES A DAY, TITRATED
     Route: 042
  20. VALPROIC ACID [Suspect]
     Active Substance: VALPROIC ACID
     Indication: Schizophrenia
     Dosage: 800 MILLIGRAM, 3 TIMES A DAY
     Route: 042
  21. VALPROIC ACID [Suspect]
     Active Substance: VALPROIC ACID
     Indication: Malignant catatonia
  22. CHLORPROMAZINE [Suspect]
     Active Substance: CHLORPROMAZINE
     Indication: Schizophrenia
     Dosage: UNK
     Route: 065
  23. CHLORPROMAZINE [Suspect]
     Active Substance: CHLORPROMAZINE
     Indication: Malignant catatonia
  24. QUETIAPINE [Suspect]
     Active Substance: QUETIAPINE
     Indication: Schizophrenia
     Dosage: 25 MILLIGRAM
     Route: 065
  25. QUETIAPINE [Suspect]
     Active Substance: QUETIAPINE
     Indication: Malignant catatonia
  26. LITHIUM [Suspect]
     Active Substance: LITHIUM
     Indication: Schizophrenia
     Dosage: UNK
     Route: 065
  27. LITHIUM [Suspect]
     Active Substance: LITHIUM
     Indication: Malignant catatonia
  28. ARIPIPRAZOLE [Suspect]
     Active Substance: ARIPIPRAZOLE
     Indication: Schizophrenia
     Dosage: UNK
     Route: 065
  29. ARIPIPRAZOLE [Suspect]
     Active Substance: ARIPIPRAZOLE
     Indication: Malignant catatonia
  30. PIMAVANSERIN [Suspect]
     Active Substance: PIMAVANSERIN
     Indication: Schizophrenia
     Dosage: UNK
     Route: 065
  31. PIMAVANSERIN [Suspect]
     Active Substance: PIMAVANSERIN
     Indication: Malignant catatonia
  32. MIDAZOLAM [Suspect]
     Active Substance: MIDAZOLAM
     Indication: Status epilepticus
     Dosage: UNK
     Route: 042
  33. ENOXAPARIN [Suspect]
     Active Substance: ENOXAPARIN
     Indication: Deep vein thrombosis
     Dosage: UNK
     Route: 065
  34. IMMUNE GLOBULIN NOS [Suspect]
     Active Substance: IMMUNE GLOBULIN NOS
     Indication: Evidence based treatment
     Dosage: UNK
     Route: 042

REACTIONS (9)
  - Respiratory arrest [Fatal]
  - Pneumonia aspiration [Fatal]
  - Psychotic disorder [Unknown]
  - Drug ineffective [Unknown]
  - Haematuria [Unknown]
  - Hypophagia [Unknown]
  - Deep vein thrombosis [Unknown]
  - Blood creatine phosphokinase increased [Unknown]
  - Off label use [Unknown]
